FAERS Safety Report 16294470 (Version 1)
Quarter: 2019Q2

REPORT INFORMATION
  Report Type: Spontaneous
  Country: US (occurrence: US)
  Receive Date: 20190509
  Receipt Date: 20190509
  Transmission Date: 20190711
  Serious: No
  Sender: FDA-Public Use
  Company Number: US-ROCHE-2095588

PATIENT
  Age: 76 Year
  Sex: Male
  Weight: 79.45 kg

DRUGS (3)
  1. ESBRIET [Suspect]
     Active Substance: PIRFENIDONE
     Indication: IDIOPATHIC PULMONARY FIBROSIS
     Dosage: 1 PILL, NOT ONGOING
     Route: 048
     Dates: start: 201802, end: 201802
  2. ESBRIET [Suspect]
     Active Substance: PIRFENIDONE
     Dosage: 2 PILLS, NOT ONGOING
     Route: 048
     Dates: start: 201802, end: 201802
  3. ESBRIET [Suspect]
     Active Substance: PIRFENIDONE
     Dosage: 3 PILLS, ONGOING: YES
     Route: 048
     Dates: start: 201802

REACTIONS (1)
  - Oxygen saturation decreased [Not Recovered/Not Resolved]

NARRATIVE: CASE EVENT DATE: 201802
